FAERS Safety Report 8102031-7 (Version None)
Quarter: 2012Q1

REPORT INFORMATION
  Report Type: 
  Country: None (occurrence: None)
  Receive Date: 20120131
  Receipt Date: 20120124
  Transmission Date: 20120608
  Serious: Yes (Hospitalization)
  Sender: FDA-Public Use
  Company Number: US-RB-036624-12

PATIENT

DRUGS (3)
  1. VIVITROL [Suspect]
     Indication: DRUG DEPENDENCE
     Dosage: UNKNOWN IF TREATMENT STARTED
  2. SUBOXONE [Suspect]
     Indication: DRUG DEPENDENCE
     Dosage: UNKNOWN IF TREATMENT WITH BUPRENORPHINE/PLACEBO STARTED
     Route: 065
  3. NALOXONE [Suspect]
     Indication: DRUG DEPENDENCE
     Dosage: UNKNOWN IF NALOXONE CHALLENGE PERFORMED

REACTIONS (2)
  - ABSCESS ORAL [None]
  - HYPERGLYCAEMIA [None]
